FAERS Safety Report 16043654 (Version 2)
Quarter: 2019Q3

REPORT INFORMATION
  Report Type: Spontaneous
  Country: US (occurrence: US)
  Receive Date: 20190306
  Receipt Date: 20190726
  Transmission Date: 20191004
  Serious: Yes (Other)
  Sender: FDA-Public Use
  Company Number: US-ASTRAZENECA-2018SF65579

PATIENT
  Age: 26600 Day
  Sex: Male
  Weight: 99.8 kg

DRUGS (33)
  1. NEXIUM [Suspect]
     Active Substance: ESOMEPRAZOLE MAGNESIUM
     Indication: GASTROOESOPHAGEAL REFLUX DISEASE
     Route: 048
     Dates: start: 20070917, end: 20150924
  2. HYDROCODONE-APAP [Concomitant]
     Active Substance: ACETAMINOPHEN\HYDROCODONE
  3. ZELNORM [Concomitant]
     Active Substance: TEGASEROD MALEATE
  4. TEMAZEPAM. [Concomitant]
     Active Substance: TEMAZEPAM
  5. CEFACLOR. [Concomitant]
     Active Substance: CEFACLOR
  6. LEXAPRO [Concomitant]
     Active Substance: ESCITALOPRAM OXALATE
  7. GABAPENTIN. [Concomitant]
     Active Substance: GABAPENTIN
  8. CIPROFLOXACIN. [Concomitant]
     Active Substance: CIPROFLOXACIN
  9. METRONIDAZOLE. [Concomitant]
     Active Substance: METRONIDAZOLE
  10. AZITHROMYCIN ANHYDROUS. [Concomitant]
     Active Substance: AZITHROMYCIN ANHYDROUS
  11. DOXYCYCLINE HYCLATE. [Concomitant]
     Active Substance: DOXYCYCLINE HYCLATE
  12. ASPIRIN. [Concomitant]
     Active Substance: ASPIRIN
  13. NEXIUM [Suspect]
     Active Substance: ESOMEPRAZOLE MAGNESIUM
     Indication: GASTROOESOPHAGEAL REFLUX DISEASE
     Route: 065
     Dates: start: 20080323
  14. MELOXICAM. [Concomitant]
     Active Substance: MELOXICAM
  15. DIOVAN [Concomitant]
     Active Substance: VALSARTAN
  16. TRAZODONE [Concomitant]
     Active Substance: TRAZODONE HYDROCHLORIDE
  17. VITAMIN D [Concomitant]
     Active Substance: VITAMIN D NOS
  18. NEXIUM [Suspect]
     Active Substance: ESOMEPRAZOLE MAGNESIUM
     Indication: GASTROOESOPHAGEAL REFLUX DISEASE
     Route: 065
     Dates: start: 20110805
  19. LIPITOR [Concomitant]
     Active Substance: ATORVASTATIN CALCIUM
  20. CARVEDILOL. [Concomitant]
     Active Substance: CARVEDILOL
  21. CIPROFLOXACIN. [Concomitant]
     Active Substance: CIPROFLOXACIN
  22. IRBESARTAN. [Concomitant]
     Active Substance: IRBESARTAN
  23. CEPHALEXIN. [Concomitant]
     Active Substance: CEPHALEXIN
  24. CYPROHEPTADINE. [Concomitant]
     Active Substance: CYPROHEPTADINE
  25. ONDANSETRON HYDROCHLORIDE. [Concomitant]
     Active Substance: ONDANSETRON HYDROCHLORIDE
  26. AMLODIPINE BESYLATE. [Concomitant]
     Active Substance: AMLODIPINE BESYLATE
  27. DOXAZOSIN [Concomitant]
     Active Substance: DOXAZOSIN MESYLATE
  28. DICYCLOMINE [Concomitant]
     Active Substance: DICYCLOMINE HYDROCHLORIDE
  29. LYRICA [Concomitant]
     Active Substance: PREGABALIN
  30. AMOXICILLIN-CLAVULNATE [Concomitant]
  31. PREDNISONE. [Concomitant]
     Active Substance: PREDNISONE
  32. VIAGRA [Concomitant]
     Active Substance: SILDENAFIL CITRATE
  33. AMOXICILLIN. [Concomitant]
     Active Substance: AMOXICILLIN

REACTIONS (2)
  - Chronic kidney disease [Not Recovered/Not Resolved]
  - Renal cyst [Not Recovered/Not Resolved]

NARRATIVE: CASE EVENT DATE: 20100322
